FAERS Safety Report 5188020-3 (Version None)
Quarter: 2006Q4

REPORT INFORMATION
  Report Type: 
  Country: None (occurrence: None)
  Receive Date: 20061214
  Receipt Date: 20061214
  Transmission Date: 20070319
  Serious: Yes (Death)
  Sender: FDA-Public Use
  Company Number: None

PATIENT
  Age: 25 Year
  Sex: Female
  Weight: 47.6277 kg

DRUGS (3)
  1. CYMBALTA [Suspect]
     Indication: ANXIETY
     Dosage: 1 CAPSULE 1 TIME DAILY PO
     Route: 048
     Dates: start: 20060424, end: 20060724
  2. CYMBALTA [Suspect]
     Indication: DEPRESSION
     Dosage: 1 CAPSULE 1 TIME DAILY PO
     Route: 048
     Dates: start: 20060424, end: 20060724
  3. WELLBUTRIN SR [Suspect]
     Indication: DEPRESSION
     Dosage: 3 TABLETS EACH MORNING PO
     Route: 048

REACTIONS (3)
  - ANXIETY [None]
  - COMPLETED SUICIDE [None]
  - DEPRESSION [None]
